FAERS Safety Report 8114043-8 (Version None)
Quarter: 2012Q1

REPORT INFORMATION
  Report Type: 
  Country: None (occurrence: None)
  Receive Date: 20120203
  Receipt Date: 20120125
  Transmission Date: 20120608
  Serious: Yes (Other)
  Sender: FDA-Public Use
  Company Number: JP-ASTRAZENECA-2012SE06013

PATIENT
  Age: 71 Year
  Sex: Male

DRUGS (4)
  1. ZOLADEX [Suspect]
     Indication: PROSTATE CANCER
     Route: 058
  2. DOCETAXEL [Concomitant]
     Route: 065
  3. OMEPRAZOLE [Suspect]
     Dosage: 20, UNKNOWN DOSE AND FREQUENCY.
     Route: 048
  4. DECADRON [Concomitant]
     Indication: PROSTATE CANCER
     Route: 048

REACTIONS (2)
  - OSTEONECROSIS [None]
  - BONE NEOPLASM MALIGNANT [None]
